FAERS Safety Report 5909350-0 (Version None)
Quarter: 2008Q4

REPORT INFORMATION
  Report Type: 
  Country: None (occurrence: None)
  Receive Date: 20081006
  Receipt Date: 20080930
  Transmission Date: 20090506
  Serious: Yes (Life-Threatening, Hospitalization)
  Sender: FDA-Public Use
  Company Number: JP-PFIZER INC-2008081291

PATIENT
  Sex: Female
  Weight: 44 kg

DRUGS (2)
  1. ATARAX [Suspect]
     Indication: ANALGESIC THERAPY
     Route: 042
  2. PENTAGIN [Suspect]
     Indication: ANALGESIC THERAPY
     Route: 042
     Dates: start: 19951226

REACTIONS (1)
  - RESPIRATORY DEPRESSION [None]
